FAERS Safety Report 8244074 (Version 4)
Quarter: 2012Q4

REPORT INFORMATION
  Report Type: 
  Country: US (occurrence: US)
  Receive Date: 20111114
  Receipt Date: 20121018
  Transmission Date: 20130627
  Serious: Yes (Hospitalization, Other)
  Sender: FDA-Public Use
  Company Number: US-ASTRAZENECA-2011SE39151

PATIENT
  Age: 67 Year
  Sex: Male

DRUGS (4)
  1. NEXIUM [Suspect]
     Route: 048
  2. NEXIUM [Suspect]
     Route: 048
  3. PRILOSEC [Suspect]
     Route: 048
  4. PROPULSID [Concomitant]

REACTIONS (13)
  - Venous occlusion [Unknown]
  - Myocardial infarction [Unknown]
  - Dyspepsia [Unknown]
  - Abdominal pain [Unknown]
  - Diabetes mellitus [Unknown]
  - Food poisoning [Unknown]
  - Gastric disorder [Unknown]
  - Ulcer [Unknown]
  - Malaise [Unknown]
  - Vomiting [Unknown]
  - Drug ineffective [Unknown]
  - Drug dose omission [Unknown]
  - Intentional drug misuse [Unknown]
